FAERS Safety Report 23146565 (Version 2)
Quarter: 2023Q4

REPORT INFORMATION
  Report Type: Spontaneous
  Country: US (occurrence: US)
  Receive Date: 20231105
  Receipt Date: 20231130
  Transmission Date: 20240110
  Serious: Yes (Hospitalization, Other)
  Sender: FDA-Public Use
  Company Number: US-drreddys-SPO/USA/23/0181005

PATIENT
  Age: 16 Year
  Sex: Male

DRUGS (18)
  1. MERCAPTOPURINE [Interacting]
     Active Substance: MERCAPTOPURINE
     Indication: Ocular icterus
     Dosage: STANDARD DOSES
  2. MERCAPTOPURINE [Interacting]
     Active Substance: MERCAPTOPURINE
     Indication: Hyperbilirubinaemia
     Dosage: REDUCED BY 50 PERCENT
  3. MERCAPTOPURINE [Interacting]
     Active Substance: MERCAPTOPURINE
     Indication: B-cell type acute leukaemia
  4. MERCAPTOPURINE [Interacting]
     Active Substance: MERCAPTOPURINE
     Indication: Hypertransaminasaemia
  5. ALLOPURINOL [Interacting]
     Active Substance: ALLOPURINOL
     Indication: B-cell type acute leukaemia
  6. ALLOPURINOL [Interacting]
     Active Substance: ALLOPURINOL
     Dosage: DECREASED TO 50%
  7. METHOTREXATE [Interacting]
     Active Substance: METHOTREXATE
     Indication: B-cell type acute leukaemia
     Dosage: STANDARD DOSES
  8. METHOTREXATE [Interacting]
     Active Substance: METHOTREXATE
     Indication: Hyperbilirubinaemia
  9. METHOTREXATE [Interacting]
     Active Substance: METHOTREXATE
     Indication: Ocular icterus
  10. METHOTREXATE [Interacting]
     Active Substance: METHOTREXATE
     Indication: Hypertransaminasaemia
  11. PREDNISONE [Concomitant]
     Active Substance: PREDNISONE
     Indication: B-cell type acute leukaemia
     Dosage: STANDARD DOSES
  12. PREDNISONE [Concomitant]
     Active Substance: PREDNISONE
     Indication: Hyperbilirubinaemia
  13. PREDNISONE [Concomitant]
     Active Substance: PREDNISONE
     Indication: Hypertransaminasaemia
  14. PREDNISONE [Concomitant]
     Active Substance: PREDNISONE
     Indication: Ocular icterus
  15. VINCRISTINE [Concomitant]
     Active Substance: VINCRISTINE
     Indication: Hyperbilirubinaemia
     Dosage: STANDARD DOSES
  16. VINCRISTINE [Concomitant]
     Active Substance: VINCRISTINE
     Indication: Hypertransaminasaemia
  17. VINCRISTINE [Concomitant]
     Active Substance: VINCRISTINE
     Indication: Ocular icterus
  18. VINCRISTINE [Concomitant]
     Active Substance: VINCRISTINE
     Indication: B-cell type acute leukaemia

REACTIONS (2)
  - Anaemia megaloblastic [Unknown]
  - Drug interaction [Unknown]
